FAERS Safety Report 13598036 (Version 1)
Quarter: 2017Q2

REPORT INFORMATION
  Report Type: Spontaneous
  Country: CH (occurrence: CH)
  Receive Date: 20170531
  Receipt Date: 20170531
  Transmission Date: 20170830
  Serious: Yes (Other)
  Sender: FDA-Public Use
  Company Number: CH-ASTRAZENECA-2017SE55117

PATIENT
  Age: 68 Year
  Sex: Female

DRUGS (27)
  1. ALKERAN [Suspect]
     Active Substance: MELPHALAN
     Dosage: 16.0MG UNKNOWN
     Route: 040
     Dates: start: 20170210, end: 20170212
  2. LIQUEMINE [Suspect]
     Active Substance: HEPARIN SODIUM
     Dosage: 22000.0IU UNKNOWN
     Route: 041
     Dates: start: 20170304, end: 20170307
  3. REVLIMID [Suspect]
     Active Substance: LENALIDOMIDE
     Route: 048
     Dates: start: 20170502
  4. PREDNISONE. [Concomitant]
     Active Substance: PREDNISONE
     Dates: start: 20170210, end: 20170211
  5. TOREM [Concomitant]
     Active Substance: TORSEMIDE
     Dates: start: 20170224, end: 20170308
  6. TARGIN [Concomitant]
     Active Substance: NALOXONE HYDROCHLORIDE\OXYCODONE HYDROCHLORIDE
     Dates: start: 20170418
  7. DEXAMETHASONE. [Suspect]
     Active Substance: DEXAMETHASONE
     Route: 048
     Dates: start: 20170503, end: 20170515
  8. ZOFRAN [Concomitant]
     Active Substance: ONDANSETRON HYDROCHLORIDE
     Dates: start: 20170208, end: 20170221
  9. VALTREX [Concomitant]
     Active Substance: VALACYCLOVIR HYDROCHLORIDE
     Dates: start: 20170210
  10. CO-AMOXI [Suspect]
     Active Substance: AMOXICILLIN\CLAVULANATE POTASSIUM
     Route: 048
     Dates: start: 20170426, end: 20170502
  11. SURMONTIL [Concomitant]
     Active Substance: TRIMIPRAMINE MALEATE
     Dates: start: 20170202
  12. DAFALGAN [Suspect]
     Active Substance: ACETAMINOPHEN
     Route: 048
     Dates: start: 20170209, end: 20170215
  13. TEMESTA [Concomitant]
     Active Substance: LORAZEPAM
     Dates: start: 20170206
  14. CEFEPIME [Concomitant]
     Active Substance: CEFEPIME HYDROCHLORIDE
     Dates: start: 20170324, end: 20170331
  15. CLEXANE [Concomitant]
     Active Substance: ENOXAPARIN SODIUM
     Dates: start: 20170210, end: 20170220
  16. LISINOPRIL. [Suspect]
     Active Substance: LISINOPRIL
     Route: 048
     Dates: start: 20170328, end: 20170511
  17. BACTRIM [Suspect]
     Active Substance: SULFAMETHOXAZOLE\TRIMETHOPRIM
     Route: 048
     Dates: start: 20170510, end: 20170514
  18. ELIQUIS [Concomitant]
     Active Substance: APIXABAN
     Dates: end: 20170203
  19. MOVICOL [Concomitant]
     Active Substance: POLYETHYLENE GLYCOL 3350\POTASSIUM CHLORIDE\SODIUM BICARBONATE\SODIUM CHLORIDE
     Dates: start: 20170427
  20. SERTRALINE [Suspect]
     Active Substance: SERTRALINE HYDROCHLORIDE
     Route: 048
     Dates: start: 20170425
  21. XANAX [Suspect]
     Active Substance: ALPRAZOLAM
     Route: 048
     Dates: start: 20170421
  22. CONCOR [Concomitant]
     Active Substance: BISOPROLOL FUMARATE
     Dates: start: 20170203, end: 20170322
  23. TRAMAL [Concomitant]
     Active Substance: TRAMADOL
     Dates: start: 20170215, end: 20170219
  24. IMPORTAL [Concomitant]
     Active Substance: LACTITOL
     Dates: start: 20170421
  25. NEXIUM [Suspect]
     Active Substance: ESOMEPRAZOLE MAGNESIUM
     Route: 048
     Dates: start: 20170204
  26. VELCADE [Suspect]
     Active Substance: BORTEZOMIB
     Dosage: 2.27MG UNKNOWN
     Route: 040
     Dates: start: 20170212, end: 20170312
  27. MOTILIUM [Concomitant]
     Active Substance: DOMPERIDONE
     Dates: start: 20170221, end: 20170302

REACTIONS (2)
  - Liver injury [Recovering/Resolving]
  - Cholestatic liver injury [Recovered/Resolved]

NARRATIVE: CASE EVENT DATE: 20170209
